FAERS Safety Report 8764586 (Version 2)
Quarter: 2012Q4

REPORT INFORMATION
  Report Type: 
  Country: US (occurrence: US)
  Receive Date: 20120831
  Receipt Date: 20121003
  Transmission Date: 20130627
  Serious: No
  Sender: FDA-Public Use
  Company Number: US-ASTRAZENECA-2012SE57152

PATIENT
  Age: 80 Year
  Sex: Female
  Weight: 90.7 kg

DRUGS (11)
  1. SYMBICORT [Suspect]
     Indication: CHRONIC OBSTRUCTIVE PULMONARY DISEASE
     Dosage: 160/mcg/4.5mcg, ONE PUFF BID
     Route: 055
     Dates: start: 2010
  2. SYMBICORT [Suspect]
     Indication: CHRONIC OBSTRUCTIVE PULMONARY DISEASE
     Dosage: UNKNOWN STRENGTH, WHEN COUGHING AND/OR WHEEZING
     Route: 055
  3. POTASSIUM [Concomitant]
  4. SIMVASTATIN [Concomitant]
  5. FUROSEMIDE [Concomitant]
  6. CYMBALTA [Concomitant]
  7. WARFARIN [Concomitant]
  8. LOSARTAN [Concomitant]
  9. ASA [Concomitant]
  10. TIKOSYN [Concomitant]
  11. CARVEDILOL [Concomitant]

REACTIONS (5)
  - Dyspnoea [Unknown]
  - Weight increased [Unknown]
  - Exercise lack of [Unknown]
  - Off label use [Unknown]
  - Drug dose omission [Unknown]
